FAERS Safety Report 24882503 (Version 1)
Quarter: 2025Q1

REPORT INFORMATION
  Report Type: Spontaneous
  Country: US (occurrence: US)
  Receive Date: 20250124
  Receipt Date: 20250124
  Transmission Date: 20250408
  Serious: Yes (Hospitalization, Other)
  Sender: ORGANON
  Company Number: US-MLMSERVICE-20250113-PI345276-00083-2

PATIENT
  Age: 99 Year
  Sex: Female

DRUGS (2)
  1. COZAAR [Suspect]
     Active Substance: LOSARTAN POTASSIUM
     Route: 048
  2. CARVEDILOL [Suspect]
     Active Substance: CARVEDILOL

REACTIONS (1)
  - BRASH syndrome [Recovering/Resolving]
